FAERS Safety Report 7463242-7 (Version None)
Quarter: 2011Q2

REPORT INFORMATION
  Report Type: 
  Country: None (occurrence: None)
  Receive Date: 20110506
  Receipt Date: 20110425
  Transmission Date: 20111010
  Serious: Yes (Other)
  Sender: FDA-Public Use
  Company Number: US-BAXTER-2011BH012651

PATIENT
  Age: 47 Year
  Sex: Male

DRUGS (11)
  1. PROLEUKIN [Suspect]
     Indication: MALIGNANT MELANOMA
     Route: 065
     Dates: start: 20100517, end: 20100528
  2. FLUDARABINE PHOSPHATE [Suspect]
     Indication: MALIGNANT MELANOMA
     Route: 065
     Dates: start: 20100519, end: 20100523
  3. KEPPRA [Concomitant]
     Indication: PRODUCT USED FOR UNKNOWN INDICATION
     Route: 065
     Dates: start: 20100517
  4. ACICLOVIR [Concomitant]
     Indication: PRODUCT USED FOR UNKNOWN INDICATION
     Route: 065
     Dates: start: 20090720, end: 20090806
  5. BACTRIM DS [Concomitant]
     Indication: PRODUCT USED FOR UNKNOWN INDICATION
     Route: 065
     Dates: start: 20090720, end: 20110208
  6. FLUDARABINE PHOSPHATE [Suspect]
     Route: 065
     Dates: start: 20090722, end: 20090726
  7. CYCLOPHOSPHAMIDE [Suspect]
     Indication: MALIGNANT MELANOMA
     Route: 042
     Dates: start: 20100517, end: 20100523
  8. PROLEUKIN [Suspect]
     Route: 065
     Dates: start: 20090727, end: 20090730
  9. FILGRASTIM [Concomitant]
     Indication: PRODUCT USED FOR UNKNOWN INDICATION
     Route: 065
     Dates: start: 20110209, end: 20110209
  10. ACICLOVIR [Concomitant]
     Route: 065
     Dates: start: 20100517, end: 20110210
  11. CYCLOPHOSPHAMIDE [Suspect]
     Route: 042
     Dates: start: 20090720, end: 20090726

REACTIONS (4)
  - GRANULOCYTE COUNT DECREASED [None]
  - LARGE GRANULAR LYMPHOCYTOSIS [None]
  - WHITE BLOOD CELL COUNT DECREASED [None]
  - NEUTROPHIL COUNT DECREASED [None]
